FAERS Safety Report 10998336 (Version 1)
Quarter: 2015Q2

REPORT INFORMATION
  Report Type: Spontaneous
  Country: US (occurrence: US)
  Receive Date: 20150408
  Receipt Date: 20150408
  Transmission Date: 20150821
  Serious: No
  Sender: FDA-Public Use
  Company Number: US-SA-2014SA047459

PATIENT
  Age: 59 Year
  Sex: Female

DRUGS (1)
  1. ALLEGRA [Suspect]
     Active Substance: FEXOFENADINE HYDROCHLORIDE
     Indication: MULTIPLE ALLERGIES
     Dosage: HALF PILLS ONCE A DAY
     Route: 048
     Dates: start: 20130331

REACTIONS (2)
  - Diarrhoea [Unknown]
  - Wrong technique in drug usage process [Unknown]
